FAERS Safety Report 4812897-1 (Version None)
Quarter: 2005Q4

REPORT INFORMATION
  Report Type: 
  Country: None (occurrence: None)
  Receive Date: 20051028
  Receipt Date: 20041206
  Transmission Date: 20060501
  Serious: Yes (Hospitalization)
  Sender: FDA-Public Use
  Company Number: US-GLAXOSMITHKLINE-A0536506A

PATIENT
  Age: 74 Year
  Sex: Female

DRUGS (18)
  1. ADVAIR DISKUS 100/50 [Suspect]
     Indication: ASTHMA
     Dosage: 1PUFF TWICE PER DAY
     Route: 055
  2. NORPACE [Concomitant]
  3. ASPIRIN [Concomitant]
  4. LASIX [Concomitant]
  5. PRILOSEC [Concomitant]
  6. PREDNISONE [Concomitant]
  7. ZOLOFT [Concomitant]
  8. GUAIFENESIN [Concomitant]
  9. K-DUR 10 [Concomitant]
  10. ALBUTEROL [Concomitant]
  11. ATROVENT [Concomitant]
  12. MECLIZINE [Concomitant]
  13. DILTIAZEM [Concomitant]
  14. FOSAMAX [Concomitant]
  15. LORAZEPAM [Concomitant]
  16. COUMADIN [Concomitant]
  17. LIPITOR [Concomitant]
  18. NASONEX [Concomitant]

REACTIONS (1)
  - HEART RATE INCREASED [None]
